FAERS Safety Report 6255688-X (Version None)
Quarter: 2009Q2

REPORT INFORMATION
  Report Type: 
  Country: None (occurrence: None)
  Receive Date: 20090618
  Receipt Date: 20090528
  Transmission Date: 20091009
  Serious: Yes (Other)
  Sender: FDA-Public Use
  Company Number: WSDF_00813

PATIENT
  Age: 47 Year
  Sex: Female
  Weight: 73.4 kg

DRUGS (2)
  1. WINRHO SDF [Suspect]
     Indication: IDIOPATHIC THROMBOCYTOPENIC PURPURA
     Dosage: (27.86 UG/KG, ADMINISTERED ONLY 9ML OUT OF PRESCRIBED 13.2ML INTRAVENOUS (NOT OTHERWISE SPECIFIED))
     Route: 042
     Dates: start: 20090406, end: 20090406
  2. ALTACE [Concomitant]

REACTIONS (3)
  - DRUG HYPERSENSITIVITY [None]
  - HAEMOLYSIS [None]
  - HYPERTENSION [None]
